FAERS Safety Report 20225852 (Version 1)
Quarter: 2021Q4

REPORT INFORMATION
  Report Type: Spontaneous
  Country: US (occurrence: US)
  Receive Date: 20211224
  Receipt Date: 20211224
  Transmission Date: 20220304
  Serious: Yes (Hospitalization)
  Sender: FDA-Public Use
  Company Number: US-SA-SAC20211223000344

PATIENT
  Sex: Female
  Weight: 77 kg

DRUGS (18)
  1. DUPIXENT [Suspect]
     Active Substance: DUPILUMAB
     Indication: Asthma
     Dosage: 300 MG, QOW
     Route: 058
     Dates: start: 20210527
  2. DUPIXENT [Suspect]
     Active Substance: DUPILUMAB
     Indication: Migraine
  3. DUPIXENT [Suspect]
     Active Substance: DUPILUMAB
     Indication: Idiopathic urticaria
  4. DUPIXENT [Suspect]
     Active Substance: DUPILUMAB
     Indication: Type 2 diabetes mellitus
  5. LOVASTATIN [Concomitant]
     Active Substance: LOVASTATIN
  6. BYDUREON [Concomitant]
     Active Substance: EXENATIDE
  7. INSULIN LISPRO [Concomitant]
     Active Substance: INSULIN LISPRO
     Dosage: 75-25 75-25/ML VIAL
  8. IPRATROPIUM BROMIDE [Concomitant]
     Active Substance: IPRATROPIUM BROMIDE
  9. LEVALBUTEROL [Concomitant]
     Active Substance: LEVALBUTEROL
  10. COMBIVENT RESPIMAT [Concomitant]
     Active Substance: ALBUTEROL SULFATE\IPRATROPIUM BROMIDE
  11. LEVOTHYROXINE SODIUM [Concomitant]
     Active Substance: LEVOTHYROXINE SODIUM
  12. METHYLPREDNISOLONE [Concomitant]
     Active Substance: METHYLPREDNISOLONE
  13. ZAFIRLUKAST [Concomitant]
     Active Substance: ZAFIRLUKAST
  14. LEVOCETIRIZINE DIHYDROCHLORIDE [Concomitant]
     Active Substance: LEVOCETIRIZINE DIHYDROCHLORIDE
     Dosage: 10MG
  15. JARDIANCE [Concomitant]
     Active Substance: EMPAGLIFLOZIN
  16. METFORMIN HYDROCHLORIDE [Concomitant]
     Active Substance: METFORMIN HYDROCHLORIDE
  17. HYDROCORTISONE [Concomitant]
     Active Substance: HYDROCORTISONE
  18. FENOFIBRATE [Concomitant]
     Active Substance: FENOFIBRATE

REACTIONS (5)
  - Fall [Unknown]
  - Upper limb fracture [Unknown]
  - COVID-19 [Unknown]
  - Asthma [Unknown]
  - Product use in unapproved indication [Unknown]

NARRATIVE: CASE EVENT DATE: 20211101
